FAERS Safety Report 25336249 (Version 2)
Quarter: 2025Q3

REPORT INFORMATION
  Report Type: Spontaneous
  Country: IN (occurrence: IN)
  Receive Date: 20250520
  Receipt Date: 20250702
  Transmission Date: 20251021
  Serious: Yes (Hospitalization, Other)
  Sender: PFIZER
  Company Number: IN-PFIZER INC-PV202500044322

PATIENT
  Age: 62 Year
  Sex: Female

DRUGS (23)
  1. LORLATINIB [Suspect]
     Active Substance: LORLATINIB
     Indication: Lung carcinoma cell type unspecified stage IV
     Dosage: 100 MG, 1X/DAY AT BED TIME WITH OR WITHOUT FOOD AT FIXED TIME
     Route: 048
     Dates: start: 20250310
  2. LORLATINIB [Suspect]
     Active Substance: LORLATINIB
     Dosage: 75 MG, 1X/DAY, AT BED TIME TO CONTINUE [ WITH OR WITHOUT FOOD AT FIXED TIME ] X 7 DAYS
     Route: 048
  3. CALGROW [Concomitant]
     Dosage: 1 DF, 1X/DAY
  4. ACETAMINOPHEN [Concomitant]
     Active Substance: ACETAMINOPHEN
     Route: 042
  5. NUCOXIA MR [Concomitant]
  6. NUCOXIA MR [Concomitant]
     Dosage: 1 DF, 2X/DAY
  7. LEVOCETIRIZINE HYDROCHLORIDE [Concomitant]
     Active Substance: LEVOCETIRIZINE HYDROCHLORIDE
     Dosage: 5 MG, 1X/DAY AT BEDTIME
  8. ALBUTEROL\IPRATROPIUM BROMIDE [Concomitant]
     Active Substance: ALBUTEROL\IPRATROPIUM BROMIDE
     Dosage: UNK, 2X/DAY
  9. ALBUTEROL\IPRATROPIUM BROMIDE [Concomitant]
     Active Substance: ALBUTEROL\IPRATROPIUM BROMIDE
     Dosage: 1.25 MG, 3X/DAY
  10. ALBUTEROL\IPRATROPIUM BROMIDE [Concomitant]
     Active Substance: ALBUTEROL\IPRATROPIUM BROMIDE
  11. ZOLEDRONIC ACID [Concomitant]
     Active Substance: ZOLEDRONIC ACID
     Dates: start: 20250309
  12. LEVOTHYROXINE [Concomitant]
     Active Substance: LEVOTHYROXINE
     Dosage: 50 UG, 1X/DAY IN EMPTY STOMACH NO LIQUID OR FOOD INTAKE FOR HALF AN HOUR AFTER TAKING THE MEDICATION
  13. LEVERA [LEVETIRACETAM] [Concomitant]
     Dosage: 500 MG, 2X/DAY AFTER FOOD
  14. TELMIKIND [Concomitant]
     Dosage: 40 MG, 1X/DAY AFTER FOOD
  15. BETACAP-TR [Concomitant]
     Dosage: 20 MG, 1X/DAY AFTER FOOD
  16. CALGROW XT [Concomitant]
     Dosage: 1 DF, 1X/DAY
  17. ULTRACET [Concomitant]
     Active Substance: ACETAMINOPHEN\TRAMADOL HYDROCHLORIDE
     Indication: Pain
  18. BUDESONIDE [Concomitant]
     Active Substance: BUDESONIDE
     Dosage: 1 DF, 2X/DAY
  19. TELMIKIND H [Concomitant]
     Dosage: 40/12.5 MG ONCE DAILY [ AFTER FOOD ]
  20. AMLODIPINE [Concomitant]
     Active Substance: AMLODIPINE BESYLATE
     Dosage: 5 MG ONCE DAILY AT BEDTIME
  21. BREVIPIL [Concomitant]
     Dosage: 50 MG, 2X/DAY
  22. VOVERAN [DICLOFENAC SODIUM] [Concomitant]
  23. LEVOCETIRIZINE DIHYDROCHLORIDE\MONTELUKAST SODIUM [Concomitant]
     Active Substance: LEVOCETIRIZINE DIHYDROCHLORIDE\MONTELUKAST SODIUM

REACTIONS (17)
  - Depressed level of consciousness [Unknown]
  - Hypoxia [Unknown]
  - Blood pressure fluctuation [Unknown]
  - Peripheral swelling [Unknown]
  - Pleural effusion [Unknown]
  - Empyema [Unknown]
  - Metastases to central nervous system [Unknown]
  - Malignant neoplasm progression [Unknown]
  - Dysphonia [Unknown]
  - Taste disorder [Unknown]
  - Fall [Unknown]
  - Pain [Unknown]
  - Asthenia [Unknown]
  - Vaginal discharge [Unknown]
  - Pyrexia [Unknown]
  - Chills [Unknown]
  - Cough [Unknown]

NARRATIVE: CASE EVENT DATE: 20250101
